FAERS Safety Report 4720941-5 (Version None)
Quarter: 2005Q3

REPORT INFORMATION
  Report Type: 
  Country: None (occurrence: None)
  Receive Date: 20050719
  Receipt Date: 20050326
  Transmission Date: 20060218
  Serious: Yes (Other)
  Sender: FDA-Public Use
  Company Number: 2005008670

PATIENT
  Age: 46 Year
  Sex: Female
  Weight: 127.0072 kg

DRUGS (7)
  1. CELEBREX [Suspect]
     Indication: LIMB INJURY
     Dosage: 400 MG (200 MG, 2 IN 1 D), ORAL
     Route: 048
     Dates: start: 19970101
  2. KARVEA HCT (HYDROCHLOROTHIAZIDE, IRBESARTAN) [Concomitant]
  3. METOPROLOL SUCCINATE [Concomitant]
  4. IRBESARTAN [Concomitant]
  5. ESOMEPRAZOLE [Concomitant]
  6. OMEPRAZOLE [Concomitant]
  7. OTHER ANTIHYPERTENSIVES [Concomitant]

REACTIONS (4)
  - GASTROOESOPHAGEAL REFLUX DISEASE [None]
  - HAEMATOCHEZIA [None]
  - HAEMORRHAGE [None]
  - STOMACH DISCOMFORT [None]
